FAERS Safety Report 4818813-0 (Version None)
Quarter: 2005Q4

REPORT INFORMATION
  Report Type: 
  Country: None (occurrence: None)
  Receive Date: 20051101
  Receipt Date: 20051019
  Transmission Date: 20060501
  Serious: Yes (Hospitalization, Other)
  Sender: FDA-Public Use
  Company Number: 2005143910

PATIENT
  Sex: Male

DRUGS (10)
  1. VIAGRA [Suspect]
     Indication: ILL-DEFINED DISORDER
     Dosage: (50 MG)
  2. TOPROL (METOPROLOL) [Concomitant]
  3. AVANDIA [Concomitant]
  4. ZOCOR [Concomitant]
  5. GLUCOPHAGE [Concomitant]
  6. ALL OTHER THERAPEUTIC PRODUCTS (ALL OTHER THERAPEUTIC PRODUCTS) [Concomitant]
  7. NORVASC [Concomitant]
  8. AMARYL [Concomitant]
  9. PLAVIX [Concomitant]
  10. TYLENOL PM (DIPHENHYDRAMINE, PARACETAMOL) [Concomitant]

REACTIONS (7)
  - CEREBROVASCULAR ACCIDENT [None]
  - DRUG INEFFECTIVE [None]
  - DRY MOUTH [None]
  - HEADACHE [None]
  - NOCTURIA [None]
  - PENILE HAEMORRHAGE [None]
  - PROSTATE EXAMINATION ABNORMAL [None]
